FAERS Safety Report 5286570-2 (Version None)
Quarter: 2007Q1

REPORT INFORMATION
  Report Type: 
  Country: None (occurrence: None)
  Receive Date: 20070116
  Receipt Date: 20061116
  Transmission Date: 20070707
  Serious: No
  Sender: FDA-Public Use
  Company Number: 2006SP004104

PATIENT
  Age: 56 Year
  Sex: Female
  Weight: 56.246 kg

DRUGS (7)
  1. LUNESTA [Suspect]
     Indication: INSOMNIA
     Dosage: 3 MG, ORAL
     Route: 048
     Dates: start: 20061001
  2. INTERFERON [Concomitant]
  3. RIBAVIRIN [Concomitant]
  4. SEROQUEL [Concomitant]
  5. ZOLOFT [Concomitant]
  6. SYNTHROID [Concomitant]
  7. ACIPHEX [Concomitant]

REACTIONS (2)
  - DRUG INEFFECTIVE [None]
  - MIDDLE INSOMNIA [None]
